FAERS Safety Report 13577871 (Version 1)
Quarter: 2017Q2

REPORT INFORMATION
  Report Type: Report from Study
  Country: US (occurrence: US)
  Receive Date: 20170524
  Receipt Date: 20170524
  Transmission Date: 20170830
  Serious: Yes (Other)
  Sender: FDA-Public Use
  Company Number: US-AMGEN-USASL2017077115

PATIENT
  Age: 68 Year
  Sex: Female
  Weight: 94.4 kg

DRUGS (23)
  1. PROLIA [Suspect]
     Active Substance: DENOSUMAB
     Indication: BONE DISORDER
  2. BIOTEARS [Concomitant]
  3. BYSTOLIC [Concomitant]
     Active Substance: NEBIVOLOL HYDROCHLORIDE
     Dosage: 5 MG, QD
     Route: 048
  4. CENTRUM SILVER [Concomitant]
     Active Substance: MINERALS\VITAMINS
     Dosage: UNK UNK, QD
     Route: 048
  5. SYSTANE LUBRICANT [Concomitant]
     Active Substance: POLYETHYLENE GLYCOL 400\PROPYLENE GLYCOL
     Dosage: 1 DROP, BID
     Route: 031
  6. ACETAMINOPHEN W/HYDROCODONE [Concomitant]
     Active Substance: ACETAMINOPHEN\HYDROCODONE
     Dosage: 1 DF (325 MG-5MG), AS NECESSARY (ONCE EVERY SIX HRS)
     Route: 048
  7. PHAZYME [Concomitant]
     Active Substance: DIMETHICONE 410
     Dosage: 180 MG, QID
     Route: 048
  8. FLUTICASONE. [Concomitant]
     Active Substance: FLUTICASONE
     Dosage: 50 MUG, BID
     Route: 045
  9. VITAMIN D3 [Concomitant]
     Active Substance: CHOLECALCIFEROL
     Dosage: 5000 IU, QD
     Route: 048
  10. TOLTERODINE [Concomitant]
     Active Substance: TOLTERODINE
     Dosage: 2 MG, BID
     Route: 048
  11. PROLIA [Suspect]
     Active Substance: DENOSUMAB
     Indication: OSTEOPOROSIS
     Dosage: 60 MG, Q6MO
     Route: 058
     Dates: start: 201406
  12. CALCICHEW [Concomitant]
     Active Substance: CALCIUM CARBONATE
  13. HYDROCHLOROTHIAZIDE W/TRIAMTERENE [Concomitant]
     Active Substance: HYDROCHLOROTHIAZIDE\TRIAMTERENE
     Dosage: 1 DF (25 MG-37.5 MG), QD
     Route: 048
  14. PROLIA [Suspect]
     Active Substance: DENOSUMAB
     Indication: OSTEOPENIA
  15. TOVIAZ [Concomitant]
     Active Substance: FESOTERODINE FUMARATE
     Dosage: 8 MG, QD
     Route: 048
  16. OMEPRAZOLE. [Concomitant]
     Active Substance: OMEPRAZOLE
     Dosage: 40 MG, QD
     Route: 048
  17. LEVOTHYROXINE. [Concomitant]
     Active Substance: LEVOTHYROXINE
     Dosage: 100 MCG, QD
     Route: 048
  18. DIAZEPAM. [Concomitant]
     Active Substance: DIAZEPAM
     Dosage: 5 MG, BID
     Route: 048
  19. POTASSIUM CHLORIDE. [Concomitant]
     Active Substance: POTASSIUM CHLORIDE
     Dosage: 20 MEQ, TID
     Route: 048
  20. VITAMIN B12 [Concomitant]
     Active Substance: CYANOCOBALAMIN
     Dosage: 2500 MCG, QD
  21. MAGNESIUM OXIDE. [Concomitant]
     Active Substance: MAGNESIUM OXIDE
     Dosage: 400 MG, QD
     Route: 048
  22. MODAFINIL. [Concomitant]
     Active Substance: MODAFINIL
     Dosage: 200 MG, QD
     Route: 048
  23. NABUMETONE. [Concomitant]
     Active Substance: NABUMETONE
     Dosage: 750 MG, (1 TABLET IN MORNING AND HALF TABELT IN EVENING)
     Route: 048

REACTIONS (12)
  - Cervix carcinoma [Unknown]
  - Periarthritis [Unknown]
  - Lymphoedema [Unknown]
  - Fall [Unknown]
  - Off label use [Unknown]
  - Hypertension [Unknown]
  - Osteoarthritis [Unknown]
  - Pain [Unknown]
  - Hypothyroidism [Unknown]
  - Urinary tract infection [Recovered/Resolved]
  - Erythema [Unknown]
  - Peripheral swelling [Unknown]

NARRATIVE: CASE EVENT DATE: 2016
